FAERS Safety Report 19014697 (Version 1)
Quarter: 2021Q1

REPORT INFORMATION
  Report Type: Spontaneous
  Country: CN (occurrence: CN)
  Receive Date: 20210316
  Receipt Date: 20210316
  Transmission Date: 20210420
  Serious: Yes (Other)
  Sender: FDA-Public Use
  Company Number: CN-PFIZER INC-2021248398

PATIENT
  Age: 4 Year
  Sex: Female

DRUGS (1)
  1. MEPEM [Suspect]
     Active Substance: MEROPENEM
     Dosage: 0.047 G, 3X/DAY
     Dates: start: 20210107, end: 20210112

REACTIONS (1)
  - Renal injury [Unknown]

NARRATIVE: CASE EVENT DATE: 20210111
